FAERS Safety Report 22365878 (Version 1)
Quarter: 2023Q2

REPORT INFORMATION
  Report Type: Spontaneous
  Country: PL (occurrence: PL)
  Receive Date: 20230525
  Receipt Date: 20230525
  Transmission Date: 20230721
  Serious: Yes (Other)
  Sender: FDA-Public Use
  Company Number: PL-BAYER-2023A068750

PATIENT
  Age: 25 Year
  Sex: Female

DRUGS (3)
  1. VENTAVIS [Suspect]
     Active Substance: ILOPROST
     Indication: Pulmonary arterial hypertension
     Dosage: UNK
     Route: 055
     Dates: start: 201901
  2. SILDENAFIL [Concomitant]
     Active Substance: SILDENAFIL
     Indication: Pulmonary arterial hypertension
     Dosage: UNK
     Dates: start: 201901
  3. EPOPROSTENOL [Concomitant]
     Active Substance: EPOPROSTENOL
     Dosage: 54 NG/KG/MIN
     Route: 042

REACTIONS (4)
  - Polyhydramnios [Unknown]
  - Exposure during pregnancy [Unknown]
  - Medication error [Unknown]
  - Condition aggravated [Unknown]
